FAERS Safety Report 20235808 (Version 1)
Quarter: 2021Q4

REPORT INFORMATION
  Report Type: Spontaneous
  Country: FR (occurrence: FR)
  Receive Date: 20211228
  Receipt Date: 20211228
  Transmission Date: 20220303
  Serious: Yes (Hospitalization)
  Sender: FDA-Public Use
  Company Number: None

PATIENT
  Age: 35 Year
  Sex: Female
  Weight: 67 kg

DRUGS (3)
  1. FOSAVANCE [Suspect]
     Active Substance: ALENDRONATE SODIUM\CHOLECALCIFEROL
     Indication: Osteoporosis
     Dosage: NOT KNOWN
     Route: 048
     Dates: start: 20200201, end: 20210301
  2. AVASTIN [Suspect]
     Active Substance: BEVACIZUMAB
     Indication: Oligodendroglioma
     Dosage: 500MG (DOSE UNITARY)
     Route: 048
     Dates: start: 2019, end: 202009
  3. METHYLPREDNISOLONE ACETATE [Suspect]
     Active Substance: METHYLPREDNISOLONE ACETATE
     Indication: Nervous system disorder
     Dosage: 100MG/J
     Route: 048
     Dates: start: 20200101, end: 202112

REACTIONS (2)
  - Osteonecrosis [Not Recovered/Not Resolved]
  - Osteonecrosis [Not Recovered/Not Resolved]

NARRATIVE: CASE EVENT DATE: 20201201
